FAERS Safety Report 6728034-2 (Version None)
Quarter: 2010Q2

REPORT INFORMATION
  Report Type: 
  Country: None (occurrence: None)
  Receive Date: 20100517
  Receipt Date: 20100512
  Transmission Date: 20101027
  Serious: Yes (Other)
  Sender: FDA-Public Use
  Company Number: US-B.I. PHARMACEUTICALS,INC./RIDGEFIELD-2010-BP-04276BP

PATIENT
  Sex: Female

DRUGS (12)
  1. SPIRIVA [Suspect]
     Indication: CHRONIC OBSTRUCTIVE PULMONARY DISEASE
     Dosage: 18 MCG
     Route: 055
     Dates: start: 20090701
  2. SPIRIVA [Suspect]
     Indication: DYSPNOEA
     Dosage: 18 MCG
     Route: 055
     Dates: start: 20100201, end: 20100406
  3. PREMARIN [Concomitant]
     Indication: MENOPAUSE
     Dosage: 0.3 MG
     Route: 048
  4. SIMVASTATIN [Concomitant]
     Indication: BLOOD CHOLESTEROL INCREASED
     Dosage: 40 MG
     Route: 048
  5. ALLEGRA [Concomitant]
     Indication: SINUS DISORDER
     Dosage: 180 MG
     Route: 048
  6. OMEPRAZOLE [Concomitant]
     Indication: FLATULENCE
     Dosage: 20 MG
     Route: 048
  7. SINGULAIR [Concomitant]
     Dosage: 10 MG
     Route: 048
  8. ATENOLOL [Concomitant]
     Dosage: 25 MG
     Route: 048
  9. PROAIR HFA [Concomitant]
     Dosage: 2 PUF
     Route: 055
  10. NITROGLYCERIN [Concomitant]
     Route: 060
  11. ASPIRIN [Concomitant]
     Dosage: 81 MG
     Route: 048
  12. VITAMINS + MINERALS [Concomitant]
     Route: 048

REACTIONS (21)
  - ASTHENIA [None]
  - BACK PAIN [None]
  - DIZZINESS [None]
  - DRUG INEFFECTIVE [None]
  - DRY MOUTH [None]
  - DYSPHAGIA [None]
  - DYSPNOEA [None]
  - DYSURIA [None]
  - EPISTAXIS [None]
  - HEART RATE INCREASED [None]
  - HYPERSENSITIVITY [None]
  - LIP SWELLING [None]
  - MUSCLE SPASMS [None]
  - MUSCULOSKELETAL PAIN [None]
  - NECK PAIN [None]
  - OROPHARYNGEAL PAIN [None]
  - SINUS DISORDER [None]
  - SWELLING FACE [None]
  - SWOLLEN TONGUE [None]
  - VISION BLURRED [None]
  - WHEEZING [None]
